FAERS Safety Report 23148816 (Version 1)
Quarter: 2023Q4

REPORT INFORMATION
  Report Type: Report from Study
  Country: US (occurrence: US)
  Receive Date: 20231106
  Receipt Date: 20231106
  Transmission Date: 20240110
  Serious: No
  Sender: FDA-Public Use
  Company Number: US-002147023-NVSC2023US234706

PATIENT
  Sex: Female

DRUGS (1)
  1. COSENTYX [Suspect]
     Active Substance: SECUKINUMAB
     Indication: Psoriasis
     Dosage: UNK
     Route: 065
     Dates: start: 2021

REACTIONS (6)
  - Drug ineffective [Unknown]
  - Psoriasis [Unknown]
  - Condition aggravated [Unknown]
  - Pain of skin [Unknown]
  - Dermatitis [Unknown]
  - Rash erythematous [Unknown]
